FAERS Safety Report 16028924 (Version 1)
Quarter: 2019Q1

REPORT INFORMATION
  Report Type: Spontaneous
  Country: US (occurrence: US)
  Receive Date: 20190304
  Receipt Date: 20190304
  Transmission Date: 20190418
  Serious: No
  Sender: FDA-Public Use
  Company Number: US-IMPAX LABORATORIES, LLC-2018-IPXL-01270

PATIENT
  Sex: Male
  Weight: 80 kg

DRUGS (7)
  1. NEUPRO [Concomitant]
     Active Substance: ROTIGOTINE
     Indication: PARKINSON^S DISEASE
     Dosage: 1 PATCH, EVERY DAY; (4 MG/24 HOUR TRANSDERMAL 24 HOUR PATCH)
     Route: 062
  2. SINEMET [Concomitant]
     Active Substance: CARBIDOPA\LEVODOPA
     Dosage: 25/100 ; 2 TABLET, QID
     Route: 048
     Dates: start: 20180115
  3. ROPINIROLE. [Concomitant]
     Active Substance: ROPINIROLE
     Indication: PARKINSON^S DISEASE
     Dosage: 3 MG; 2 DF, QID
     Route: 048
  4. RYTARY [Suspect]
     Active Substance: CARBIDOPA\LEVODOPA
     Indication: PARKINSON^S DISEASE
     Dosage: 48.75/195 MG; 1 CAPSULE, QD
     Route: 048
     Dates: start: 20180208
  5. SINEMET [Concomitant]
     Active Substance: CARBIDOPA\LEVODOPA
     Indication: PARKINSON^S DISEASE
     Dosage: 25/250; 2 TABLET, FOR 90 DAYS
     Route: 048
  6. ZOLPIDEM [Concomitant]
     Active Substance: ZOLPIDEM\ZOLPIDEM TARTRATE
     Indication: PRODUCT USED FOR UNKNOWN INDICATION
     Dosage: 5 MG, PRN; (AT BEDTIME)
     Route: 048
  7. OMEPRAZOLE. [Concomitant]
     Active Substance: OMEPRAZOLE
     Indication: PRODUCT USED FOR UNKNOWN INDICATION
     Dosage: 20 MG, QD
     Route: 048

REACTIONS (10)
  - Gait inability [Unknown]
  - Dysarthria [Unknown]
  - Drug effect incomplete [Unknown]
  - Drug effect variable [Unknown]
  - Asthenia [Unknown]
  - Freezing phenomenon [Unknown]
  - Fall [Unknown]
  - Muscle spasms [Unknown]
  - Bradykinesia [Unknown]
  - Balance disorder [Unknown]
